FAERS Safety Report 5688106-0 (Version None)
Quarter: 2008Q1

REPORT INFORMATION
  Report Type: 
  Country: None (occurrence: None)
  Receive Date: 20080327
  Receipt Date: 20080314
  Transmission Date: 20080703
  Serious: No
  Sender: FDA-Public Use
  Company Number: DSU-2008-00301

PATIENT
  Age: 83 Year
  Sex: Female
  Weight: 48.0813 kg

DRUGS (5)
  1. WELCHOL [Suspect]
     Indication: HYPERCHOLESTEROLAEMIA
     Dosage: 1250 MG (625 MG, BID), PER ORAL
     Route: 048
     Dates: start: 20080227, end: 20080312
  2. TOPROL-XL [Concomitant]
  3. AVAPRO (IRBESARTAN) (IRBESARTAN) [Concomitant]
  4. SULAR (NISOLDIPINE) (NISOLDIPINE) [Concomitant]
  5. LEXAPRO [Concomitant]

REACTIONS (1)
  - DYSPHAGIA [None]
